FAERS Safety Report 4921988-6 (Version None)
Quarter: 2006Q1

REPORT INFORMATION
  Report Type: 
  Country: None (occurrence: None)
  Receive Date: 20060223
  Receipt Date: 20060223
  Transmission Date: 20060701
  Serious: Yes (Other)
  Sender: FDA-Public Use
  Company Number: None

PATIENT
  Sex: Male
  Weight: 89.3586 kg

DRUGS (2)
  1. OXYCONTIN [Suspect]
     Indication: CROHN'S DISEASE
     Dosage: 80 MG PO BID
     Route: 048
     Dates: start: 20030201
  2. OXYCONTIN [Suspect]
     Indication: OSTEOARTHRITIS
     Dosage: 80 MG PO BID
     Route: 048
     Dates: start: 20030201

REACTIONS (2)
  - NAUSEA [None]
  - VOMITING [None]
